FAERS Safety Report 7346413-X (Version None)
Quarter: 2011Q1

REPORT INFORMATION
  Report Type: 
  Country: None (occurrence: None)
  Receive Date: 20110301
  Receipt Date: 20110215
  Transmission Date: 20110831
  Serious: Yes (Other)
  Sender: FDA-Public Use
  Company Number: 1000017538

PATIENT
  Age: 88 Year
  Sex: Female

DRUGS (7)
  1. MEMANTINE [Suspect]
     Indication: DEMENTIA ALZHEIMER'S TYPE
     Dosage: 5, 10, 15 MG (5 MG, 1 IN 1 D), ORAL
     Route: 048
     Dates: start: 20100925, end: 20101001
  2. MEMANTINE [Suspect]
     Indication: DEMENTIA ALZHEIMER'S TYPE
     Dosage: 5, 10, 15 MG (5 MG, 1 IN 1 D), ORAL
     Route: 048
     Dates: start: 20101002, end: 20101008
  3. MEMANTINE [Suspect]
     Indication: DEMENTIA ALZHEIMER'S TYPE
     Dosage: 5, 10, 15 MG (5 MG, 1 IN 1 D), ORAL
     Route: 048
     Dates: start: 20101009, end: 20101015
  4. LORAZEPAM [Concomitant]
  5. MEMANTINE [Suspect]
     Indication: DEMENTIA ALZHEIMER'S TYPE
     Dosage: 20 MG (20 MG, 1 IN 1 D), ORAL
     Route: 048
     Dates: start: 20101016, end: 20101103
  6. IRBESARTAN + HYDROCHLOROTHIAZIDE [Concomitant]
  7. TORSEMIDE [Concomitant]

REACTIONS (1)
  - GRAND MAL CONVULSION [None]
